FAERS Safety Report 6247278-X (Version None)
Quarter: 2009Q2

REPORT INFORMATION
  Report Type: 
  Country: None (occurrence: None)
  Receive Date: 20090626
  Receipt Date: 20090616
  Transmission Date: 20091009
  Serious: Yes (Hospitalization)
  Sender: FDA-Public Use
  Company Number: A0781093A

PATIENT
  Age: 52 Year
  Sex: Male

DRUGS (3)
  1. AVANDIA [Suspect]
     Dosage: 8MG PER DAY
     Route: 065
     Dates: start: 20050501, end: 20060611
  2. AVANDAMET [Suspect]
     Route: 065
  3. AVANDARYL [Suspect]
     Route: 065

REACTIONS (2)
  - MYOCARDIAL INFARCTION [None]
  - MYOCARDIAL ISCHAEMIA [None]
